FAERS Safety Report 4393729-5 (Version None)
Quarter: 2004Q3

REPORT INFORMATION
  Report Type: 
  Country: None (occurrence: None)
  Receive Date: 20040709
  Receipt Date: 20040519
  Transmission Date: 20050211
  Serious: Yes (Disabling)
  Sender: FDA-Public Use
  Company Number: JP-GLAXOSMITHKLINE-B0333317A

PATIENT
  Age: 69 Year
  Sex: Female

DRUGS (15)
  1. ALKERAN [Suspect]
     Indication: STEM CELL TRANSPLANT
     Dosage: 150MG PER DAY
     Route: 042
     Dates: start: 20040214, end: 20040215
  2. GRAN [Suspect]
     Dosage: 300MCG UNKNOWN
     Route: 042
     Dates: start: 20040218, end: 20040229
  3. ACYCLOVIR [Concomitant]
     Indication: HERPES VIRUS INFECTION
     Dosage: 250MG PER DAY
     Route: 042
     Dates: start: 20040216, end: 20040229
  4. HYDROCORTONE [Concomitant]
     Indication: HYPERSENSITIVITY
     Dosage: 100MG PER DAY
     Route: 042
     Dates: start: 20040217, end: 20040217
  5. DIFLUCAN [Concomitant]
     Indication: SYSTEMIC MYCOSIS
     Dosage: 200MG PER DAY
     Route: 042
     Dates: start: 20040223, end: 20040228
  6. MAXIPIME [Concomitant]
     Indication: SEPSIS
     Dosage: 4G PER DAY
     Route: 042
     Dates: start: 20040223, end: 20040228
  7. FULCALIQ [Concomitant]
     Indication: MALNUTRITION
     Route: 042
     Dates: start: 20040216, end: 20040219
  8. ZANTAC [Concomitant]
     Indication: GASTRITIS
     Dosage: 100MG PER DAY
     Route: 042
     Dates: end: 20040302
  9. GASTER D [Concomitant]
     Indication: GASTRITIS
     Dosage: 40MG PER DAY
     Route: 048
     Dates: start: 20040213, end: 20040216
  10. ITRIZOLE [Concomitant]
     Indication: SYSTEMIC MYCOSIS
     Dosage: 200MG PER DAY
     Route: 048
     Dates: start: 20040213, end: 20040222
  11. URSO [Concomitant]
     Indication: CHOLESTASIS
     Dosage: 600MG PER DAY
     Route: 048
     Dates: start: 20040213, end: 20040222
  12. ZOVIRAX [Concomitant]
     Indication: HERPES VIRUS INFECTION
     Dosage: 1000MG PER DAY
     Route: 048
     Dates: start: 20040213, end: 20040215
  13. BAKTAR [Concomitant]
     Indication: INFECTION PROPHYLAXIS
     Dosage: 4TAB PER DAY
     Route: 048
     Dates: start: 20040213, end: 20040215
  14. FULCALIQ [Concomitant]
     Dosage: 1UNIT PER DAY
     Route: 042
     Dates: start: 20040224, end: 20040302
  15. LEVOFLOXACIN [Concomitant]
     Indication: INTESTINAL FISTULA INFECTION
     Dosage: 300MG PER DAY
     Route: 048
     Dates: start: 20040213, end: 20040222

REACTIONS (5)
  - BLOOD LACTATE DEHYDROGENASE INCREASED [None]
  - COUGH [None]
  - INSOMNIA [None]
  - INTERSTITIAL LUNG DISEASE [None]
  - MALAISE [None]
